FAERS Safety Report 18747331 (Version 1)
Quarter: 2021Q1

REPORT INFORMATION
  Report Type: Spontaneous
  Country: IQ (occurrence: IQ)
  Receive Date: 20210115
  Receipt Date: 20210115
  Transmission Date: 20210419
  Serious: Yes (Hospitalization, Other)
  Sender: FDA-Public Use
  Company Number: IQ-LUPIN PHARMACEUTICALS INC.-2021-00132

PATIENT
  Age: 64 Year
  Sex: Female

DRUGS (5)
  1. DIGOXIN. [Interacting]
     Active Substance: DIGOXIN
     Indication: ATRIAL FIBRILLATION
     Dosage: 0.25 MILLIGRAM, QD (DIGOXIN TABLET 0.25 MG ONCE DAILY)
     Route: 065
     Dates: start: 202002
  2. HYDROXYCHLOROQUINE [Suspect]
     Active Substance: HYDROXYCHLOROQUINE
     Indication: SUSPECTED COVID-19
     Dosage: 200 MILLIGRAM (HYDROXYCHLOROQUINE 200 MG TWICE DAILY)
     Route: 065
     Dates: start: 202003
  3. AZITHROMYCIN ANHYDROUS. [Interacting]
     Active Substance: AZITHROMYCIN ANHYDROUS
     Indication: SUSPECTED COVID-19
     Dosage: 500 MILLIGRAM, QD (AZITHROMYCIN 500 MG ONCE DAILY)
     Route: 065
     Dates: start: 202003
  4. WARFARIN [Interacting]
     Active Substance: WARFARIN
     Indication: ATRIAL FIBRILLATION
     Dosage: 5 MILLIGRAM, QD (WARFARIN TABLET 5 MG ONCE DAILY)
     Route: 065
     Dates: start: 202002
  5. ATROPINE. [Concomitant]
     Active Substance: ATROPINE
     Indication: BRADYCARDIA
     Dosage: 0.6 MILLIGRAM (FREQUENT INJECTIONS; 0.6 MG AS NEEDED)
     Route: 065
     Dates: start: 202003

REACTIONS (6)
  - Product prescribing error [Unknown]
  - Drug interaction [Recovered/Resolved]
  - Cardiotoxicity [Recovered/Resolved]
  - Toxicity to various agents [Recovered/Resolved]
  - Electrocardiogram QT prolonged [Recovered/Resolved]
  - Atrioventricular block complete [Recovered/Resolved]

NARRATIVE: CASE EVENT DATE: 202003
